FAERS Safety Report 16059041 (Version 2)
Quarter: 2019Q2

REPORT INFORMATION
  Report Type: Report from Study
  Country: GB (occurrence: GB)
  Receive Date: 20190311
  Receipt Date: 20190425
  Transmission Date: 20190711
  Serious: Yes (Other)
  Sender: FDA-Public Use
  Company Number: PHHY2019GB021321

PATIENT
  Age: 74 Year
  Sex: Female

DRUGS (1)
  1. KISQALI [Suspect]
     Active Substance: RIBOCICLIB
     Indication: BREAST CANCER
     Dosage: 600 MG, QD
     Route: 048
     Dates: start: 20190117

REACTIONS (7)
  - Ventricular extrasystoles [Unknown]
  - Hypotension [Unknown]
  - Dyspnoea at rest [Unknown]
  - Myocardial infarction [Unknown]
  - Dyspnoea exertional [Unknown]
  - Chest pain [Unknown]
  - Productive cough [Unknown]

NARRATIVE: CASE EVENT DATE: 20190223
